FAERS Safety Report 6607300-5 (Version None)
Quarter: 2010Q1

REPORT INFORMATION
  Report Type: 
  Country: None (occurrence: None)
  Receive Date: 20100228
  Receipt Date: 20100215
  Transmission Date: 20100710
  Serious: Yes (Death)
  Sender: FDA-Public Use
  Company Number: US-JNJFOC-20100210972

PATIENT
  Age: 47 Year
  Sex: Male
  Weight: 136.08 kg

DRUGS (8)
  1. DURAGESIC-100 [Suspect]
     Indication: DRUG USE FOR UNKNOWN INDICATION
  2. ACETAMINOPHEN [Concomitant]
  3. CITALOPRAM HYDROBROMIDE [Concomitant]
  4. XANAX [Concomitant]
  5. HYDROCODONE [Concomitant]
  6. DESIPRAMINE [Concomitant]
  7. EFFEXOR [Concomitant]
  8. PHENYTOIN [Concomitant]

REACTIONS (3)
  - INTENTIONAL DRUG MISUSE [None]
  - NARCOTIC INTOXICATION [None]
  - WRONG TECHNIQUE IN DRUG USAGE PROCESS [None]
